FAERS Safety Report 7923773-X (Version None)
Quarter: 2011Q4

REPORT INFORMATION
  Report Type: 
  Country: None (occurrence: None)
  Receive Date: 20111117
  Receipt Date: 20110208
  Transmission Date: 20120403
  Serious: No
  Sender: FDA-Public Use
  Company Number: US-AMGEN-USASP2011007519

PATIENT
  Age: 44 Year
  Sex: Male

DRUGS (7)
  1. METHOTREXATE [Concomitant]
     Dosage: 2.5 MG, UNK
  2. TEMAZEPAM [Concomitant]
     Dosage: 15 MG, UNK
  3. LISINOPRIL [Concomitant]
     Dosage: 2.5 MG, UNK
  4. INDOMETHACIN [Concomitant]
     Dosage: 50 MG, UNK
  5. LEXAPRO [Concomitant]
     Dosage: 10 MG, UNK
  6. WELLBUTRIN [Concomitant]
     Dosage: 150 MG, UNK
  7. ENBREL [Suspect]
     Indication: PRODUCT USED FOR UNKNOWN INDICATION
     Dosage: 50 MG, QWK

REACTIONS (2)
  - PAINFUL RESPIRATION [None]
  - CHEST DISCOMFORT [None]
